FAERS Safety Report 7938336-X (Version None)
Quarter: 2011Q4

REPORT INFORMATION
  Report Type: 
  Country: None (occurrence: None)
  Receive Date: 20111123
  Receipt Date: 20111112
  Transmission Date: 20120403
  Serious: Yes (Hospitalization)
  Sender: FDA-Public Use
  Company Number: US-PFIZER INC-2011245366

PATIENT
  Sex: Male
  Weight: 89 kg

DRUGS (7)
  1. ASPIRIN [Concomitant]
  2. ZETIA [Concomitant]
     Dosage: 10 MG, 1X/DAY
  3. COREG [Concomitant]
  4. CRIZOTINIB [Suspect]
     Indication: NON-SMALL CELL LUNG CANCER
     Dosage: 250 MG, 2X/DAY
     Route: 048
     Dates: start: 20110603, end: 20111024
  5. ZOCOR [Concomitant]
     Dosage: 40 MG, 1X/DAY
  6. POTASSIUM [Concomitant]
     Dosage: 20 MEQ, 1X/DAY
  7. LEVOTHYROXINE [Concomitant]
     Dosage: 50 UG, 1X/DAY

REACTIONS (8)
  - LOSS OF CONSCIOUSNESS [None]
  - OEDEMA PERIPHERAL [None]
  - ORTHOSTATIC HYPOTENSION [None]
  - ILEUS [None]
  - SYNCOPE [None]
  - ATELECTASIS [None]
  - CONSTIPATION [None]
  - BALANCE DISORDER [None]
